FAERS Safety Report 20655339 (Version 1)
Quarter: 2022Q1

REPORT INFORMATION
  Report Type: Spontaneous
  Country: US (occurrence: US)
  Receive Date: 20220330
  Receipt Date: 20220330
  Transmission Date: 20220423
  Serious: Yes (Death, Life-Threatening, Other)
  Sender: FDA-Public Use
  Company Number: US-BRISTOL-MYERS SQUIBB COMPANY-2022-010796

PATIENT
  Age: 82 Year
  Sex: Female
  Weight: 59.87 kg

DRUGS (1)
  1. INREBIC [Suspect]
     Active Substance: FEDRATINIB HYDROCHLORIDE
     Indication: Myeloproliferative neoplasm
     Dosage: DAILY
     Route: 048

REACTIONS (1)
  - Death [Fatal]
